FAERS Safety Report 13475008 (Version 5)
Quarter: 2017Q4

REPORT INFORMATION
  Report Type: Report from Study
  Country: US (occurrence: US)
  Receive Date: 20170424
  Receipt Date: 20171004
  Transmission Date: 20180320
  Serious: Yes (Other)
  Sender: FDA-Public Use
  Company Number: US-AMGEN-USASL2017056041

PATIENT
  Age: 82 Year
  Sex: Male

DRUGS (3)
  1. REPATHA [Suspect]
     Active Substance: EVOLOCUMAB
     Indication: HYPERCHOLESTEROLAEMIA
     Dosage: 140 MG, Q2WK
     Route: 065
     Dates: start: 20161121
  2. REPATHA [Suspect]
     Active Substance: EVOLOCUMAB
     Indication: HYPERLIPIDAEMIA
  3. GARLIC. [Concomitant]
     Active Substance: GARLIC
     Indication: AORTIC ANEURYSM
     Dosage: 10 TO 12, QD

REACTIONS (4)
  - Arthropathy [Unknown]
  - Therapeutic response unexpected [Unknown]
  - Gastrointestinal disorder [Recovered/Resolved]
  - Renal disorder [Unknown]
